FAERS Safety Report 21981543 (Version 4)
Quarter: 2023Q2

REPORT INFORMATION
  Report Type: Report from Study
  Country: LB (occurrence: LB)
  Receive Date: 20230211
  Receipt Date: 20230408
  Transmission Date: 20230722
  Serious: Yes (Hospitalization, Other)
  Sender: FDA-Public Use
  Company Number: LB-002147023-NVSC2022LB048907

PATIENT
  Age: 49 Year
  Sex: Female
  Weight: 67 kg

DRUGS (10)
  1. HYRIMOZ [Suspect]
     Active Substance: ADALIMUMAB-ADAZ
     Indication: Rheumatoid arthritis
     Dosage: 40 MG, Q2W
     Route: 058
     Dates: start: 20211220, end: 202202
  2. HYRIMOZ [Suspect]
     Active Substance: ADALIMUMAB-ADAZ
     Dosage: 40 MG, Q2W
     Route: 058
     Dates: end: 202205
  3. HYRIMOZ [Suspect]
     Active Substance: ADALIMUMAB-ADAZ
     Dosage: 40 MG, Q2W
     Route: 058
     Dates: end: 20230120
  4. OLFEN [Concomitant]
     Indication: Rheumatoid arthritis
     Dosage: UNK
     Route: 048
     Dates: start: 20220218, end: 20220326
  5. MAXIT [Concomitant]
     Indication: Rheumatoid arthritis
     Dosage: UNK
     Route: 048
     Dates: start: 20220218, end: 20220326
  6. MAXIT [Concomitant]
     Indication: Inflammation
  7. CATAFLAM [Concomitant]
     Active Substance: DICLOFENAC POTASSIUM
     Indication: Rheumatoid arthritis
     Dosage: UNK UNK, BID
     Route: 048
     Dates: start: 20220218, end: 20220326
  8. CATAFLAM [Concomitant]
     Active Substance: DICLOFENAC POTASSIUM
     Dosage: UNK, QD
     Route: 048
  9. LEFLUNOMIDE [Concomitant]
     Active Substance: LEFLUNOMIDE
     Indication: Rheumatoid arthritis
     Dosage: 20 MG
     Route: 048
     Dates: start: 20220218, end: 20220326
  10. VITAMIN B12 [Concomitant]
     Active Substance: CYANOCOBALAMIN
     Indication: Rheumatoid arthritis
     Dosage: UNK
     Route: 030
     Dates: start: 202208

REACTIONS (14)
  - Myelosuppression [Unknown]
  - Anaemia [Unknown]
  - Gait disturbance [Recovering/Resolving]
  - Haematological infection [Recovering/Resolving]
  - Arthritis [Recovering/Resolving]
  - Pyrexia [Recovering/Resolving]
  - Neurological infection [Unknown]
  - Intentional product misuse [Recovering/Resolving]
  - Joint range of motion decreased [Recovered/Resolved]
  - Joint range of motion decreased [Recovering/Resolving]
  - Arthralgia [Recovered/Resolved]
  - Joint stiffness [Recovered/Resolved]
  - Pain in extremity [Recovering/Resolving]
  - Product supply issue [Unknown]

NARRATIVE: CASE EVENT DATE: 20220218
